FAERS Safety Report 10652281 (Version 1)
Quarter: 2014Q4

REPORT INFORMATION
  Report Type: Spontaneous
  Country: US (occurrence: None)
  Receive Date: 20141212
  Receipt Date: 20141212
  Transmission Date: 20150529
  Serious: No
  Sender: FDA-Public Use
  Company Number: None

PATIENT
  Age: 75 Year
  Sex: Female
  Weight: 125 kg

DRUGS (11)
  1. CALCIUM WITH VITAMIN D [Concomitant]
     Active Substance: CALCIUM\VITAMIN D
  2. VITAMIN D-3 [Concomitant]
  3. LOVAZA [Concomitant]
     Active Substance: OMEGA-3-ACID ETHYL ESTERS
  4. WOMEN^ S ONE DAILY  VITAMINS [Concomitant]
  5. VITAMIN E [Concomitant]
     Active Substance: .ALPHA.-TOCOPHEROL
  6. PROBIOTIC [Concomitant]
     Active Substance: PROBIOTICS NOS
  7. PREMARIN [Concomitant]
     Active Substance: ESTROGENS, CONJUGATED
  8. LOW DOSE ASPIRIN [Concomitant]
     Active Substance: ASPIRIN
  9. OMEPRAZOLE. [Suspect]
     Active Substance: OMEPRAZOLE
     Indication: GASTROOESOPHAGEAL REFLUX DISEASE
     Dosage: 1 CAP PER DAY  MOUTH
     Route: 048
     Dates: start: 20141008, end: 20141011
  10. VITAMIN B12 [Concomitant]
     Active Substance: CYANOCOBALAMIN
  11. MAGNESIUM WITH CHELATED ZINC [Concomitant]

REACTIONS (2)
  - Blood pressure increased [None]
  - Feeling abnormal [None]

NARRATIVE: CASE EVENT DATE: 20141011
